FAERS Safety Report 4450798-1 (Version None)
Quarter: 2004Q3

REPORT INFORMATION
  Report Type: 
  Country: None (occurrence: None)
  Receive Date: 20040913
  Receipt Date: 20040513
  Transmission Date: 20050211
  Serious: No
  Sender: FDA-Public Use
  Company Number: 2004-BP-03753BP(0)

PATIENT
  Age: 37 Year
  Sex: Female

DRUGS (2)
  1. SPIRIVA [Suspect]
     Dosage: IH
     Dates: start: 20040510, end: 20040513
  2. PRENATAL VITAMINS(PRENATAL VITAMINS) [Concomitant]

REACTIONS (3)
  - DYSPNOEA [None]
  - LUNG DISORDER [None]
  - MUSCLE FATIGUE [None]
